FAERS Safety Report 13945314 (Version 1)
Quarter: 2017Q3

REPORT INFORMATION
  Report Type: Spontaneous
  Country: US (occurrence: US)
  Receive Date: 20170907
  Receipt Date: 20170907
  Transmission Date: 20171128
  Serious: No
  Sender: FDA-Public Use
  Company Number: US-PFIZER INC-2017382548

PATIENT
  Age: 64 Year
  Sex: Female
  Weight: 79.38 kg

DRUGS (6)
  1. VYVANSE [Concomitant]
     Active Substance: LISDEXAMFETAMINE DIMESYLATE
     Indication: ATTENTION DEFICIT/HYPERACTIVITY DISORDER
  2. PRISTIQ EXTENDED-RELEASE [Suspect]
     Active Substance: DESVENLAFAXINE SUCCINATE
     Indication: BACK PAIN
  3. PRISTIQ EXTENDED-RELEASE [Suspect]
     Active Substance: DESVENLAFAXINE SUCCINATE
     Indication: NECK PAIN
  4. PRISTIQ EXTENDED-RELEASE [Suspect]
     Active Substance: DESVENLAFAXINE SUCCINATE
     Indication: MUSCULOSKELETAL PAIN
  5. PRISTIQ EXTENDED-RELEASE [Suspect]
     Active Substance: DESVENLAFAXINE SUCCINATE
     Indication: DEPRESSION
     Dosage: 25MG ONCE A DAY IN THE MORNING
     Dates: start: 20170827
  6. VYVANSE [Concomitant]
     Active Substance: LISDEXAMFETAMINE DIMESYLATE
     Indication: HYPERPHAGIA
     Dosage: 20 MG, 1X/DAY
     Route: 048
     Dates: start: 2017

REACTIONS (7)
  - Vision blurred [Not Recovered/Not Resolved]
  - Weight decreased [Not Recovered/Not Resolved]
  - Nausea [Not Recovered/Not Resolved]
  - Insomnia [Not Recovered/Not Resolved]
  - Restlessness [Not Recovered/Not Resolved]
  - Visual impairment [Not Recovered/Not Resolved]
  - Eyelid disorder [Not Recovered/Not Resolved]

NARRATIVE: CASE EVENT DATE: 201708
